FAERS Safety Report 19132826 (Version 1)
Quarter: 2021Q2

REPORT INFORMATION
  Report Type: Report from Study
  Country: AE (occurrence: AE)
  Receive Date: 20210414
  Receipt Date: 20210414
  Transmission Date: 20210717
  Serious: Yes (Other)
  Sender: FDA-Public Use
  Company Number: NVSC2021AE076363

PATIENT
  Age: 27 Year
  Sex: Male

DRUGS (2)
  1. COSENTYX [Suspect]
     Active Substance: SECUKINUMAB
     Dosage: UNK
     Route: 065
     Dates: start: 20210320
  2. COSENTYX [Suspect]
     Active Substance: SECUKINUMAB
     Indication: PSORIASIS
     Dosage: 300 MG, UNKNOWN (LOADING DOSE THEN ONCE EVERY 4 WEEKS)
     Route: 058
     Dates: start: 20201223, end: 202103

REACTIONS (2)
  - Rash [Not Recovered/Not Resolved]
  - Rash [Recovered/Resolved]

NARRATIVE: CASE EVENT DATE: 202101
